FAERS Safety Report 8310859-3 (Version None)
Quarter: 2012Q2

REPORT INFORMATION
  Report Type: 
  Country: None (occurrence: None)
  Receive Date: 20120423
  Receipt Date: 20120409
  Transmission Date: 20120825
  Serious: Yes (Hospitalization)
  Sender: FDA-Public Use
  Company Number: US-DEXPHARM-20120232

PATIENT
  Sex: Male
  Weight: 59 kg

DRUGS (3)
  1. OMEPRAZOLE [Suspect]
     Indication: DYSPEPSIA
     Dosage: 40 MG ONCE A DAY, ORAL
     Route: 048
     Dates: start: 20110704, end: 20110804
  2. PRILOSEC [Suspect]
     Dates: start: 20050101, end: 20080304
  3. OMEPRAZOLE [Suspect]
     Indication: DYSPEPSIA
     Dosage: 20 MG ONCE A DAY, ORAL
     Route: 048
     Dates: end: 20110805

REACTIONS (4)
  - ULCER HAEMORRHAGE [None]
  - THERAPY CESSATION [None]
  - ARTHRITIS [None]
  - PALPITATIONS [None]
